FAERS Safety Report 5911913-3 (Version None)
Quarter: 2008Q4

REPORT INFORMATION
  Report Type: 
  Country: None (occurrence: None)
  Receive Date: 20081008
  Receipt Date: 20080925
  Transmission Date: 20090506
  Serious: Yes (Hospitalization)
  Sender: FDA-Public Use
  Company Number: PHBS2008ES05866

PATIENT
  Age: 72 Year
  Sex: Male

DRUGS (5)
  1. IMATINIB MESYLATE [Suspect]
     Indication: CHRONIC MYELOID LEUKAEMIA
     Dosage: 400 MG/DAY
     Dates: start: 20040701, end: 20070201
  2. ACETAMINOPHEN [Suspect]
  3. IBUPROFEN [Suspect]
  4. AMOXICILLIN [Suspect]
  5. CLARITHROMYCIN [Suspect]

REACTIONS (9)
  - ANAL ABSCESS [None]
  - APLASTIC ANAEMIA [None]
  - ENTEROCOCCAL INFECTION [None]
  - FUNGAL INFECTION [None]
  - PANCYTOPENIA [None]
  - PURULENCE [None]
  - PYREXIA [None]
  - RESPIRATORY TRACT INFECTION [None]
  - STENOTROPHOMONAS INFECTION [None]
